FAERS Safety Report 5127402-2 (Version None)
Quarter: 2006Q4

REPORT INFORMATION
  Report Type: 
  Country: None (occurrence: None)
  Receive Date: 20061013
  Receipt Date: 20061013
  Transmission Date: 20070319
  Serious: No
  Sender: FDA-Public Use
  Company Number: None

PATIENT
  Age: 76 Year
  Sex: Female

DRUGS (1)
  1. LEVOFLOXACIN [Suspect]
     Indication: MASTOIDITIS
     Dosage: ORAL; 500.0 MILLIGRAM
     Route: 048
     Dates: start: 20060814, end: 20060819

REACTIONS (6)
  - ABDOMINAL DISCOMFORT [None]
  - ANOREXIA [None]
  - DYSPEPSIA [None]
  - NAUSEA [None]
  - PARAESTHESIA ORAL [None]
  - SWELLING [None]
